FAERS Safety Report 16040339 (Version 1)
Quarter: 2019Q1

REPORT INFORMATION
  Report Type: Spontaneous
  Country: US (occurrence: US)
  Receive Date: 20190206
  Receipt Date: 20190206
  Transmission Date: 20190418
  Serious: Yes (Death)
  Sender: FDA-Public Use
  Company Number: None

PATIENT
  Age: 75 Year
  Sex: Male
  Weight: 73.94 kg

DRUGS (7)
  1. CAPECITABINE  500 MG [Suspect]
     Active Substance: CAPECITABINE
     Indication: RECTAL POLYP
     Route: 048
     Dates: start: 20181102, end: 20190130
  2. MAGNSIUM [Concomitant]
  3. PREDNISONE. [Concomitant]
     Active Substance: PREDNISONE
  4. LORAZEPAM. [Concomitant]
     Active Substance: LORAZEPAM
  5. PANTOPRAZOLE [Concomitant]
     Active Substance: PANTOPRAZOLE
  6. METOPROLOL. [Concomitant]
     Active Substance: METOPROLOL
  7. MONTELUKAST [Concomitant]
     Active Substance: MONTELUKAST SODIUM

REACTIONS (1)
  - Death [None]

NARRATIVE: CASE EVENT DATE: 20190130
